FAERS Safety Report 4463410-2 (Version None)
Quarter: 2004Q3

REPORT INFORMATION
  Report Type: 
  Country: None (occurrence: None)
  Receive Date: 20040928
  Receipt Date: 20040914
  Transmission Date: 20050211
  Serious: Yes (Hospitalization)
  Sender: FDA-Public Use
  Company Number: 04P-163-0273183-00

PATIENT
  Age: 78 Year
  Sex: Female
  Weight: 5.4432 kg

DRUGS (5)
  1. HUMIRA [Suspect]
     Indication: RHEUMATOID ARTHRITIS
     Dosage: 40 MG, 1 IN 2 WK, SUBCUTANEOUS
     Route: 058
     Dates: start: 20040101, end: 20040601
  2. HUMIRA [Suspect]
     Indication: RHEUMATOID ARTHRITIS
     Dosage: 40 MG, 1 IN 2 WK, SUBCUTANEOUS
     Route: 058
     Dates: start: 20040815
  3. CELECOXIB [Concomitant]
  4. PREDNISONE [Concomitant]
  5. METHOTREXATE [Concomitant]

REACTIONS (4)
  - ARTHRALGIA [None]
  - GALLBLADDER DISORDER [None]
  - PAIN EXACERBATED [None]
  - TOOTHACHE [None]
